FAERS Safety Report 6812864-2 (Version None)
Quarter: 2010Q3

REPORT INFORMATION
  Report Type: 
  Country: None (occurrence: None)
  Receive Date: 20100701
  Receipt Date: 20100621
  Transmission Date: 20110219
  Serious: Yes (Disabling, Other)
  Sender: FDA-Public Use
  Company Number: US-ELI_LILLY_AND_COMPANY-US201006005763

PATIENT
  Sex: Female

DRUGS (8)
  1. PROZAC [Suspect]
     Indication: DEPRESSION
     Dosage: 60 MG, DAILY (1/D)
  2. ZYPREXA [Suspect]
     Indication: DEPRESSION
     Dosage: 1.25 MG, DAILY (1/D)
  3. ZYPREXA [Suspect]
     Dosage: 2.5 MG, DAILY (1/D)
  4. ZYPREXA ZYDIS [Suspect]
     Indication: DEPRESSION
     Dosage: 5 MG, DAILY (1/D)
  5. SYNTHROID [Concomitant]
  6. METFORMIN HCL [Concomitant]
  7. LASIX [Concomitant]
  8. LISINOPRIL [Concomitant]

REACTIONS (7)
  - COGNITIVE DISORDER [None]
  - DEPRESSION [None]
  - FATIGUE [None]
  - INSOMNIA [None]
  - MEMORY IMPAIRMENT [None]
  - NERVOUS SYSTEM DISORDER [None]
  - SOMNOLENCE [None]
